FAERS Safety Report 6417749-1 (Version None)
Quarter: 2009Q4

REPORT INFORMATION
  Report Type: 
  Country: None (occurrence: None)
  Receive Date: 20091028
  Receipt Date: 20090929
  Transmission Date: 20100525
  Serious: No
  Sender: FDA-Public Use
  Company Number: US-BAYER-200915086BCC

PATIENT
  Age: 42 Year
  Sex: Female
  Weight: 61 kg

DRUGS (3)
  1. ALEVE [Suspect]
     Indication: SINUS HEADACHE
     Dosage: AS USED: 220 MG  UNIT DOSE: 220 MG
     Route: 065
     Dates: start: 20020101, end: 20030101
  2. PAXIDIL [Concomitant]
     Route: 065
  3. PAIN MEDICATION [Concomitant]
     Indication: TOOTHACHE
     Route: 065

REACTIONS (1)
  - SINUS HEADACHE [None]
